FAERS Safety Report 16083207 (Version 1)
Quarter: 2019Q1

REPORT INFORMATION
  Report Type: Spontaneous
  Country: US (occurrence: US)
  Receive Date: 20190318
  Receipt Date: 20190318
  Transmission Date: 20190418
  Serious: Yes (Hospitalization, Other)
  Sender: FDA-Public Use
  Company Number: US-AUROBINDO-AUR-APL-2019-014282

PATIENT

DRUGS (2)
  1. BUPIVACAINE HYDROCHLORIDE. [Suspect]
     Active Substance: BUPIVACAINE HYDROCHLORIDE
     Indication: PAIN
     Dosage: 30 MILLIGRAM PER MILLILITRE
     Route: 037
  2. HYDROMORPHONE [Suspect]
     Active Substance: HYDROMORPHONE
     Indication: PAIN
     Dosage: 0.5 MILLIGRAM PER MILLILITRE
     Route: 037

REACTIONS (12)
  - Paraesthesia oral [Recovered/Resolved]
  - Spinal shock [Recovered/Resolved]
  - Muscular weakness [Recovered/Resolved]
  - Sinus bradycardia [Recovered/Resolved]
  - Hypoaesthesia [Recovered/Resolved]
  - Hypotension [Recovered/Resolved]
  - Hypotonia [Recovered/Resolved]
  - Nausea [Recovered/Resolved]
  - Limb discomfort [Recovered/Resolved]
  - Wrong technique in device usage process [Recovered/Resolved]
  - Medication error [Recovered/Resolved]
  - Consciousness fluctuating [Recovered/Resolved]
